FAERS Safety Report 4891871-3 (Version None)
Quarter: 2006Q1

REPORT INFORMATION
  Report Type: 
  Country: None (occurrence: None)
  Receive Date: 20060123
  Receipt Date: 20060104
  Transmission Date: 20060701
  Serious: Yes (Hospitalization)
  Sender: FDA-Public Use
  Company Number: 430544

PATIENT
  Age: 42 Year
  Sex: Female
  Weight: 69 kg

DRUGS (2)
  1. LARIAM [Suspect]
     Indication: MALARIA PROPHYLAXIS
  2. VALETTE (DIENOGEST/ETHINYL ESTRADIOL) [Concomitant]

REACTIONS (2)
  - CHOLECYSTITIS ACUTE [None]
  - HIATUS HERNIA [None]
